FAERS Safety Report 8005580-5 (Version None)
Quarter: 2011Q4

REPORT INFORMATION
  Report Type: 
  Country: None (occurrence: None)
  Receive Date: 20111223
  Receipt Date: 20111220
  Transmission Date: 20120403
  Serious: Yes (Other)
  Sender: FDA-Public Use
  Company Number: US-ROCHE-784504

PATIENT
  Sex: Male
  Weight: 65.83 kg

DRUGS (3)
  1. MINOCIN [Concomitant]
     Indication: ACNE
  2. ACCUTANE [Suspect]
     Route: 065
     Dates: start: 19990901, end: 20000501
  3. ACCUTANE [Suspect]
     Indication: ACNE CYSTIC
     Route: 048
     Dates: start: 19960101, end: 19960401

REACTIONS (3)
  - INFLAMMATORY BOWEL DISEASE [None]
  - COLITIS ULCERATIVE [None]
  - EMOTIONAL DISTRESS [None]
